FAERS Safety Report 9147744 (Version 1)
Quarter: 2013Q1

REPORT INFORMATION
  Report Type: Spontaneous
  Country: US (occurrence: US)
  Receive Date: 20130307
  Receipt Date: 20130307
  Transmission Date: 20140127
  Serious: No
  Sender: FDA-Public Use
  Company Number: US-009507513-1303USA003174

PATIENT
  Age: 27 Year
  Sex: Female

DRUGS (2)
  1. AFRIN SPRAY [Suspect]
     Indication: SINUS DISORDER
     Dosage: UNK, ONCE
     Route: 045
  2. AFRIN SPRAY [Suspect]
     Indication: MEDICAL OBSERVATION

REACTIONS (3)
  - Lacrimation increased [Unknown]
  - Burning sensation [Unknown]
  - Exposure during pregnancy [Unknown]
